FAERS Safety Report 22158076 (Version 4)
Quarter: 2023Q2

REPORT INFORMATION
  Report Type: Report from Study
  Country: JP (occurrence: JP)
  Receive Date: 20230330
  Receipt Date: 20230530
  Transmission Date: 20230722
  Serious: Yes (Death)
  Sender: FDA-Public Use
  Company Number: JP-JNJFOC-20230342013

PATIENT
  Age: 81 Year
  Sex: Female
  Weight: 58 kg

DRUGS (4)
  1. IMBRUVICA [Suspect]
     Active Substance: IBRUTINIB
     Indication: Chronic lymphocytic leukaemia
     Route: 048
     Dates: start: 20190108, end: 20200707
  2. IMBRUVICA [Suspect]
     Active Substance: IBRUTINIB
     Indication: Chronic lymphocytic leukaemia
     Route: 048
     Dates: start: 20200708, end: 20200901
  3. IMBRUVICA [Suspect]
     Active Substance: IBRUTINIB
     Indication: Chronic lymphocytic leukaemia
     Route: 048
     Dates: start: 20200902, end: 20220301
  4. SULFAMETHOXAZOLE\TRIMETHOPRIM [Concomitant]
     Active Substance: SULFAMETHOXAZOLE\TRIMETHOPRIM
     Indication: Prophylaxis
     Dosage: DOSE UNKNOWN
     Route: 065
     Dates: start: 20190108, end: 20190301

REACTIONS (4)
  - Sarcoma uterus [Fatal]
  - Memory impairment [Recovered/Resolved]
  - Muscle spasms [Recovered/Resolved]
  - Metastases to peritoneum [Fatal]

NARRATIVE: CASE EVENT DATE: 20200708
